FAERS Safety Report 8003727-8 (Version None)
Quarter: 2011Q4

REPORT INFORMATION
  Report Type: 
  Country: None (occurrence: None)
  Receive Date: 20111222
  Receipt Date: 20111220
  Transmission Date: 20120403
  Serious: Yes (Hospitalization, Other)
  Sender: FDA-Public Use
  Company Number: US-TEVA-311768USA

PATIENT
  Sex: Female
  Weight: 86.26 kg

DRUGS (1)
  1. PARAGARD T 380A [Suspect]
     Indication: CONTRACEPTION
     Route: 015
     Dates: start: 20101011, end: 20111125

REACTIONS (4)
  - ABDOMINAL ADHESIONS [None]
  - OVARIAN CYST [None]
  - PERITONEAL HAEMORRHAGE [None]
  - ABDOMINAL PAIN [None]
